FAERS Safety Report 19555981 (Version 3)
Quarter: 2021Q3

REPORT INFORMATION
  Report Type: Spontaneous
  Country: TW (occurrence: TW)
  Receive Date: 20210716
  Receipt Date: 20210719
  Transmission Date: 20211014
  Serious: Yes (Life-Threatening, Hospitalization, Other)
  Sender: FDA-Public Use
  Company Number: TW-B.I. PHARMACEUTICALS,INC./RIDGEFIELD-2021-BI-115507

PATIENT
  Age: 69 Year
  Sex: Female
  Weight: 50.3 kg

DRUGS (6)
  1. ATROVENT [Suspect]
     Active Substance: IPRATROPIUM BROMIDE
     Indication: PNEUMONIA
  2. BRICANYL [Suspect]
     Active Substance: TERBUTALINE SULFATE
     Indication: ASTHMA
     Route: 055
  3. BRICANYL [Suspect]
     Active Substance: TERBUTALINE SULFATE
     Indication: PNEUMONIA
  4. METHYLPREDNISOLONE. [Suspect]
     Active Substance: METHYLPREDNISOLONE
     Indication: ASTHMA
     Route: 042
  5. ATROVENT [Suspect]
     Active Substance: IPRATROPIUM BROMIDE
     Indication: ASTHMA
     Route: 055
  6. METHYLPREDNISOLONE. [Suspect]
     Active Substance: METHYLPREDNISOLONE
     Indication: PNEUMONIA

REACTIONS (1)
  - Drug ineffective [Recovering/Resolving]

NARRATIVE: CASE EVENT DATE: 201908
